FAERS Safety Report 5076516-4 (Version None)
Quarter: 2006Q3

REPORT INFORMATION
  Report Type: 
  Country: None (occurrence: None)
  Receive Date: 20060725
  Receipt Date: 20060321
  Transmission Date: 20061208
  Serious: No
  Sender: FDA-Public Use
  Company Number: 200611758BWH

PATIENT
  Age: 50 Year
  Sex: Male

DRUGS (3)
  1. NEXAVAR [Suspect]
     Indication: RENAL CELL CARCINOMA STAGE UNSPECIFIED
     Dosage: SEE IMAGE
     Route: 048
     Dates: start: 20060201
  2. NEXAVAR [Suspect]
     Indication: RENAL CELL CARCINOMA STAGE UNSPECIFIED
     Dosage: SEE IMAGE
     Route: 048
     Dates: start: 20060201
  3. ENDOCET [Concomitant]

REACTIONS (7)
  - BLISTER [None]
  - GAIT DISTURBANCE [None]
  - NAUSEA [None]
  - OEDEMA PERIPHERAL [None]
  - ORAL PAIN [None]
  - PAIN IN EXTREMITY [None]
  - PALMAR-PLANTAR ERYTHRODYSAESTHESIA SYNDROME [None]
